FAERS Safety Report 4996437-2 (Version None)
Quarter: 2006Q2

REPORT INFORMATION
  Report Type: 
  Country: None (occurrence: None)
  Receive Date: 20060505
  Receipt Date: 20060426
  Transmission Date: 20061013
  Serious: Yes (Hospitalization)
  Sender: FDA-Public Use
  Company Number: 2006-04-1974

PATIENT
  Age: 52 Year
  Sex: Female

DRUGS (2)
  1. DIPROPHOS (BETAMETHASONE SODIUM PHOSPHATE/DIPROPIONA INJECTABLE SUSPEN [Suspect]
     Dosage: 5X1ML
     Dates: start: 20041216, end: 20041216
  2. SCANDICAIN [Concomitant]

REACTIONS (5)
  - BLOOD PRESSURE INCREASED [None]
  - INJECTION SITE IRRITATION [None]
  - INJECTION SITE PAIN [None]
  - OVERDOSE [None]
  - SENSATION OF FOREIGN BODY [None]
